FAERS Safety Report 24434929 (Version 1)
Quarter: 2024Q4

REPORT INFORMATION
  Report Type: Spontaneous
  Country: NL (occurrence: NL)
  Receive Date: 20241014
  Receipt Date: 20241014
  Transmission Date: 20250115
  Serious: Yes (Hospitalization, Other)
  Sender: SANDOZ
  Company Number: NL-SANDOZ-SDZ2024NL086741

PATIENT
  Age: 34 Year
  Sex: Male

DRUGS (1)
  1. ADALIMUMAB [Suspect]
     Active Substance: ADALIMUMAB
     Indication: Crohn^s disease
     Dosage: UNK
     Route: 065

REACTIONS (3)
  - Colonic fistula [Recovered/Resolved]
  - Bacterial sepsis [Unknown]
  - Procedural haemorrhage [Recovered/Resolved]
